FAERS Safety Report 13844742 (Version 2)
Quarter: 2017Q3

REPORT INFORMATION
  Report Type: Spontaneous
  Country: US (occurrence: US)
  Receive Date: 20170808
  Receipt Date: 20170809
  Transmission Date: 20171127
  Serious: No
  Sender: FDA-Public Use
  Company Number: US-BAYER-2017-151357

PATIENT
  Age: 85 Year
  Sex: Female
  Weight: 39 kg

DRUGS (6)
  1. CARDIZEM [Concomitant]
     Active Substance: DILTIAZEM HYDROCHLORIDE
     Indication: HYPERTENSION
     Dosage: UNK
  2. SEVERIN [Concomitant]
     Dosage: UNK
  3. MONTELUKAST [Concomitant]
     Active Substance: MONTELUKAST SODIUM
     Dosage: UNK
  4. CLOPIDOGREL [Concomitant]
     Active Substance: CLOPIDOGREL BISULFATE
     Dosage: UNK
  5. THIAZAMIDE [Concomitant]
     Dosage: UNK
  6. ALEVE [Suspect]
     Active Substance: NAPROXEN SODIUM
     Dosage: UNK
     Route: 048

REACTIONS (3)
  - Therapeutic response unexpected [Unknown]
  - Product use in unapproved indication [Unknown]
  - Incorrect drug administration duration [Unknown]
